FAERS Safety Report 18798198 (Version 1)
Quarter: 2021Q1

REPORT INFORMATION
  Report Type: Spontaneous
  Country: SE (occurrence: SE)
  Receive Date: 20210128
  Receipt Date: 20210128
  Transmission Date: 20210419
  Serious: Yes (Other)
  Sender: FDA-Public Use
  Company Number: SE-009507513-2101SWE012071

PATIENT
  Age: 59 Year
  Sex: Male
  Weight: 104 kg

DRUGS (2)
  1. MIRTAZAPINE. [Suspect]
     Active Substance: MIRTAZAPINE
     Indication: SLEEP DISORDER
     Dosage: 15 MILLIGRAM, QD
     Dates: start: 20200331
  2. ETORICOXIB. [Suspect]
     Active Substance: ETORICOXIB
     Dosage: 60 MILLIGRAM, QD, 1 TABLET DAILY LOT: ET251E9009 SN: 91565270356192
     Dates: start: 20200331, end: 20200420

REACTIONS (4)
  - Hypertension [Recovered/Resolved]
  - Peripheral swelling [Recovered/Resolved]
  - Visual impairment [Recovered/Resolved]
  - Palpitations [Recovered/Resolved]

NARRATIVE: CASE EVENT DATE: 20200401
